FAERS Safety Report 4383184-3 (Version None)
Quarter: 2004Q2

REPORT INFORMATION
  Report Type: 
  Country: None (occurrence: None)
  Receive Date: 20040623
  Receipt Date: 20040614
  Transmission Date: 20050107
  Serious: Yes (Other)
  Sender: FDA-Public Use
  Company Number: PHBS2004SE07804

PATIENT
  Age: 87 Year
  Sex: Female

DRUGS (1)
  1. VOLTAREN [Suspect]

REACTIONS (1)
  - OSTEONECROSIS [None]
